FAERS Safety Report 15246968 (Version 2)
Quarter: 2019Q2

REPORT INFORMATION
  Report Type: Spontaneous
  Country: US (occurrence: US)
  Receive Date: 20180806
  Receipt Date: 20190418
  Transmission Date: 20190711
  Serious: No
  Sender: FDA-Public Use
  Company Number: US-SHIRE-US201830269

PATIENT
  Age: 68 Year
  Sex: Female

DRUGS (2)
  1. XIIDRA [Suspect]
     Active Substance: LIFITEGRAST
     Indication: DRY EYE
     Dosage: UNK, 2X/DAY:BID
     Route: 047
     Dates: start: 201807
  2. XIIDRA [Suspect]
     Active Substance: LIFITEGRAST
     Dosage: UNK, 2X/DAY:BID
     Route: 047
     Dates: start: 201812

REACTIONS (3)
  - Drug ineffective [Unknown]
  - Instillation site reaction [Recovered/Resolved]
  - Vision blurred [Recovered/Resolved]
